FAERS Safety Report 5967648-4 (Version None)
Quarter: 2008Q4

REPORT INFORMATION
  Report Type: 
  Country: None (occurrence: None)
  Receive Date: 20081126
  Receipt Date: 20081118
  Transmission Date: 20090506
  Serious: Yes (Other)
  Sender: FDA-Public Use
  Company Number: PHEH2008US10395

PATIENT
  Sex: Female

DRUGS (3)
  1. TEKTURNA [Suspect]
  2. DIOVAN HCT [Suspect]
  3. BETA BLOCKING AGENTS [Suspect]

REACTIONS (1)
  - HOMICIDAL IDEATION [None]
